FAERS Safety Report 10007523 (Version 3)
Quarter: 2014Q2

REPORT INFORMATION
  Report Type: Report from Study
  Country: NO (occurrence: NO)
  Receive Date: 20140313
  Receipt Date: 20140522
  Transmission Date: 20141212
  Serious: Yes (Death, Other)
  Sender: FDA-Public Use
  Company Number: NO-CELGENEUS-122-20785-14024423

PATIENT
  Age: 77 Year
  Sex: Male
  Weight: 108 kg

DRUGS (44)
  1. THALIDOMIDE [Suspect]
     Indication: PLASMA CELL MYELOMA
     Dosage: 200 MILLIGRAM
     Route: 048
     Dates: start: 20120202, end: 20121108
  2. THALIDOMIDE [Suspect]
     Dosage: 100 MILLIGRAM
     Route: 048
     Dates: start: 20121109, end: 20130703
  3. MELPHALAN [Suspect]
     Indication: PLASMA CELL MYELOMA
     Route: 065
     Dates: start: 20120203, end: 20120206
  4. MELPHALAN [Suspect]
     Dosage: 18 MILLIGRAM
     Route: 065
     Dates: start: 20121005, end: 20121008
  5. PREDNISONE [Suspect]
     Indication: PLASMA CELL MYELOMA
     Dosage: 200 MILLIGRAM
     Route: 065
     Dates: start: 20120203, end: 20120206
  6. PREDNISONE [Suspect]
     Dosage: 200 MILLIGRAM
     Route: 065
     Dates: start: 20121005, end: 20121008
  7. SIMVASTATIN [Concomitant]
     Indication: HYPERCHOLESTEROLAEMIA
     Route: 065
     Dates: start: 1997
  8. PANTOPRAZOL [Concomitant]
     Indication: OESOPHAGITIS
     Route: 065
     Dates: start: 20111213, end: 20121109
  9. PANTOPRAZOL [Concomitant]
     Indication: GASTROINTESTINAL HAEMORRHAGE
     Route: 065
     Dates: start: 20131224
  10. ALEMAZINE TARTRATE [Concomitant]
     Indication: INSOMNIA
     Route: 065
     Dates: start: 20111220, end: 2012
  11. ALEMAZINE TARTRATE [Concomitant]
     Route: 065
     Dates: start: 20131227
  12. BUMETANIDA [Concomitant]
     Indication: OEDEMA
     Route: 065
     Dates: start: 20111215
  13. BUMETANIDA [Concomitant]
     Route: 065
     Dates: start: 20121112, end: 20130209
  14. BUMETANIDA [Concomitant]
     Route: 065
     Dates: start: 20130214
  15. BUMETANIDA [Concomitant]
     Route: 065
     Dates: start: 20130320
  16. BUMETANIDA [Concomitant]
     Route: 065
     Dates: start: 20130430
  17. BUMETANIDA [Concomitant]
     Route: 065
     Dates: start: 20130925
  18. OXYCODONE HYDROCHLORIDE [Concomitant]
     Indication: PAIN
     Route: 065
     Dates: start: 20111220
  19. SODIUM PICOSULFATE [Concomitant]
     Indication: CONSTIPATION
     Route: 065
     Dates: start: 20120127
  20. ACETYLCYSTEINE [Concomitant]
     Indication: PRODUCT USED FOR UNKNOWN INDICATION
     Route: 065
     Dates: start: 20111215
  21. ZOPICLONE [Concomitant]
     Indication: INSOMNIA
     Dosage: 5-10
     Route: 065
     Dates: start: 20111213, end: 20140116
  22. METOPROLOL SUCCINATE [Concomitant]
     Indication: ATRIAL FIBRILLATION
     Route: 065
     Dates: start: 20120213
  23. METOCLOPRAMIDE [Concomitant]
     Indication: NAUSEA
     Dosage: INTEMITTENT
     Route: 065
     Dates: start: 20120330
  24. ONDANSETRON [Concomitant]
     Indication: NAUSEA
     Dosage: INTERMITTENT
     Route: 065
     Dates: start: 20120214
  25. BORTEZOMIB [Concomitant]
     Indication: PLASMA CELL MYELOMA
     Dosage: 3 MILLIGRAM
     Route: 065
     Dates: start: 20140107
  26. DEXAMETHASONE [Concomitant]
     Indication: PLASMA CELL MYELOMA
     Dosage: 20 MILLIGRAM
     Route: 065
     Dates: start: 20140107
  27. LACTULOSE [Concomitant]
     Indication: CONSTIPATION
     Route: 065
     Dates: start: 20120402
  28. LACTULOSE [Concomitant]
     Dosage: 15-40
     Route: 065
     Dates: start: 20130430
  29. NALOXONE HYDROCHLORIDE [Concomitant]
     Indication: PAIN
     Route: 065
     Dates: start: 20120407
  30. INSULIN [Concomitant]
     Indication: DIABETES MELLITUS
     Route: 065
     Dates: start: 20121126
  31. INSULIN [Concomitant]
     Route: 065
     Dates: start: 20130925
  32. INSULIN [Concomitant]
     Route: 065
     Dates: start: 20131228
  33. MACROGOL [Concomitant]
     Indication: CONSTIPATION
     Route: 065
     Dates: start: 20121018
  34. RAMIPRIL [Concomitant]
     Indication: CARDIAC FAILURE
     Route: 065
     Dates: start: 20130211
  35. RAMIPRIL [Concomitant]
     Route: 065
  36. PHENOXYMETHYL PENICILLIN [Concomitant]
     Indication: PRODUCT USED FOR UNKNOWN INDICATION
     Route: 065
     Dates: start: 20130212
  37. AMLODIPINE [Concomitant]
     Indication: CARDIAC FAILURE
     Route: 065
     Dates: start: 20130322
  38. SPIRONOLACTONE [Concomitant]
     Indication: OEDEMA
     Route: 065
     Dates: start: 20130325
  39. DIAZEPAM [Concomitant]
     Indication: ANXIETY
     Dosage: INTERMITTENT
     Route: 065
     Dates: start: 20131223
  40. TRANEXAMIC ACID [Concomitant]
     Indication: GASTROINTESTINAL HAEMORRHAGE
     Dosage: 1500-4000
     Route: 065
     Dates: start: 20140109
  41. VALACICLOVIR [Concomitant]
     Indication: PROPHYLAXIS
     Route: 065
     Dates: start: 20140107
  42. DARBEPOETIN ALFA [Concomitant]
     Indication: ANAEMIA
     Route: 065
     Dates: start: 20140219
  43. CLOMETHIAZOLE [Concomitant]
     Indication: INSOMNIA
     Route: 065
     Dates: start: 20130927
  44. RED BLOOD CELLS [Concomitant]
     Indication: ANAEMIA
     Route: 065
     Dates: start: 20120202, end: 20130703

REACTIONS (1)
  - Myelodysplastic syndrome [Fatal]
